FAERS Safety Report 9031001 (Version 1)
Quarter: 2013Q1

REPORT INFORMATION
  Report Type: Spontaneous
  Country: DK (occurrence: DK)
  Receive Date: 20130123
  Receipt Date: 20130123
  Transmission Date: 20140127
  Serious: Yes (Other)
  Sender: FDA-Public Use
  Company Number: PHHY2013DK005309

PATIENT
  Sex: Male
  Weight: 120 kg

DRUGS (3)
  1. OLANZAPINE [Suspect]
     Dosage: 10 MG, QD
     Dates: start: 201110, end: 201206
  2. OLANZAPINE [Suspect]
     Dosage: 20 MG, QD
     Dates: start: 201110, end: 201206
  3. ZYPADHERA [Suspect]
     Dosage: 405 MG, QW2
     Dates: start: 201110, end: 201206

REACTIONS (7)
  - Irritability [Unknown]
  - Hypersomnia [Unknown]
  - Condition aggravated [Unknown]
  - Weight increased [Unknown]
  - Blood glucose increased [Unknown]
  - Dry mouth [Unknown]
  - Prescribed overdose [Recovered/Resolved]
